FAERS Safety Report 6300973-6 (Version None)
Quarter: 2009Q3

REPORT INFORMATION
  Report Type: 
  Country: None (occurrence: None)
  Receive Date: 20090807
  Receipt Date: 20090727
  Transmission Date: 20100115
  Serious: Yes (Hospitalization, Other)
  Sender: FDA-Public Use
  Company Number: NSADSS2000002540

PATIENT
  Sex: Female

DRUGS (9)
  1. REMICADE [Suspect]
     Route: 041
     Dates: start: 20000302, end: 20000413
  2. REMICADE [Suspect]
     Route: 041
     Dates: start: 20000302, end: 20000413
  3. REMICADE [Suspect]
     Indication: RHEUMATOID ARTHRITIS
     Route: 041
     Dates: start: 20000302, end: 20000413
  4. STREPTOMYCIN [Suspect]
     Indication: TUBERCULOSIS
  5. RIFAMPICIN [Suspect]
     Indication: TUBERCULOSIS
  6. PREDNISONE [Suspect]
     Indication: RHEUMATOID ARTHRITIS
     Dates: start: 19980101
  7. METHOTREXATE [Concomitant]
     Indication: RHEUMATOID ARTHRITIS
     Dates: start: 20000302
  8. CYCLOPHOSPHAMIDE [Concomitant]
     Indication: RHEUMATOID ARTHRITIS
  9. LEFLUNOMIDE [Concomitant]

REACTIONS (8)
  - AORTIC VALVE CALCIFICATION [None]
  - DISSEMINATED TUBERCULOSIS [None]
  - HEPATITIS TOXIC [None]
  - PYREXIA [None]
  - PYURIA [None]
  - RHEUMATOID ARTHRITIS [None]
  - TREMOR [None]
  - VESTIBULAR DISORDER [None]
